FAERS Safety Report 5604446-5 (Version None)
Quarter: 2008Q1

REPORT INFORMATION
  Report Type: 
  Country: None (occurrence: None)
  Receive Date: 20080123
  Receipt Date: 20080123
  Transmission Date: 20080703
  Serious: Yes (Other)
  Sender: FDA-Public Use
  Company Number: None

PATIENT
  Age: 38 Year
  Sex: Female
  Weight: 129.2752 kg

DRUGS (1)
  1. CHANTIX [Suspect]
     Indication: SMOKER
     Dosage: WILL BEGIN MTH 2 ON JAN 22ND TWICE DAILY PO
     Route: 048
     Dates: start: 20071225, end: 20080118

REACTIONS (8)
  - CONSTIPATION [None]
  - DEPERSONALISATION [None]
  - DEREALISATION [None]
  - HEADACHE [None]
  - INSOMNIA [None]
  - NAUSEA [None]
  - NIGHTMARE [None]
  - SLEEP TERROR [None]
